FAERS Safety Report 8174412-7 (Version None)
Quarter: 2012Q1

REPORT INFORMATION
  Report Type: 
  Country: None (occurrence: None)
  Receive Date: 20120229
  Receipt Date: 20120221
  Transmission Date: 20120608
  Serious: Yes (Hospitalization)
  Sender: FDA-Public Use
  Company Number: CA-ELI_LILLY_AND_COMPANY-CA201201004411

PATIENT
  Sex: Female

DRUGS (9)
  1. VENTOLIN [Concomitant]
  2. CELEXA [Concomitant]
  3. MULTI-VITAMINS [Concomitant]
  4. FORTEO [Suspect]
     Indication: OSTEOPOROSIS
     Dosage: 20 UG, QD
     Route: 058
     Dates: start: 20100501, end: 20120111
  5. VITAMIN D [Concomitant]
  6. PLAVIX [Concomitant]
  7. PANTOPRAZOLE SODIUM [Concomitant]
  8. LEVOTHYROXINE SODIUM [Concomitant]
  9. ASPIRIN [Concomitant]

REACTIONS (2)
  - TRANSIENT ISCHAEMIC ATTACK [None]
  - MYOCARDIAL INFARCTION [None]
